FAERS Safety Report 8207975-3 (Version None)
Quarter: 2012Q1

REPORT INFORMATION
  Report Type: 
  Country: None (occurrence: None)
  Receive Date: 20120314
  Receipt Date: 20120305
  Transmission Date: 20120608
  Serious: Yes (Life-Threatening, Other)
  Sender: FDA-Public Use
  Company Number: RO-ROXANE LABORATORIES, INC.-2012-RO-00787RO

PATIENT
  Age: 51 Year
  Sex: Male

DRUGS (5)
  1. PREDNISONE [Suspect]
     Indication: RENAL TRANSPLANT
     Dosage: 10 MG
  2. CAPTOPRIL [Suspect]
     Indication: HYPERTENSION
     Dosage: 50 MG
  3. MYCOPHENOLATE MOFETIL [Suspect]
     Indication: RENAL TRANSPLANT
     Dosage: 2 G
  4. PROGRAF [Suspect]
     Indication: RENAL TRANSPLANT
     Dosage: 40 MG
  5. METOPROLOL SUCCINATE [Suspect]
     Indication: HYPERTENSION
     Dosage: 200 MG

REACTIONS (8)
  - BRONCHOPULMONARY ASPERGILLOSIS [None]
  - ACCIDENTAL OVERDOSE [None]
  - ATRIAL FIBRILLATION [None]
  - RENAL FAILURE [None]
  - HALLUCINATION [None]
  - INFECTION REACTIVATION [None]
  - IMMUNODEFICIENCY [None]
  - CARDIAC FAILURE [None]
